FAERS Safety Report 17037327 (Version 4)
Quarter: 2020Q1

REPORT INFORMATION
  Report Type: Report from Study
  Country: US (occurrence: US)
  Receive Date: 20191115
  Receipt Date: 20200220
  Transmission Date: 20200409
  Serious: No
  Sender: FDA-Public Use
  Company Number: NVSC2019US037387

PATIENT
  Sex: Female

DRUGS (1)
  1. GILENYA [Suspect]
     Active Substance: FINGOLIMOD HYDROCHLORIDE
     Indication: MULTIPLE SCLEROSIS
     Dosage: 0.5 MG (ONE CAPSULE TWO DAYS A WEEK)
     Route: 048
     Dates: start: 20180712

REACTIONS (3)
  - White blood cell count decreased [Unknown]
  - Product prescribing error [Unknown]
  - White blood cell count increased [Unknown]
